FAERS Safety Report 13715964 (Version 1)
Quarter: 2017Q3

REPORT INFORMATION
  Report Type: Spontaneous
  Country: ES (occurrence: ES)
  Receive Date: 20170705
  Receipt Date: 20170705
  Transmission Date: 20171127
  Serious: Yes (Other)
  Sender: FDA-Public Use
  Company Number: ES-ROCHE-1959270

PATIENT
  Age: 49 Year
  Sex: Female

DRUGS (13)
  1. ARAVA [Concomitant]
     Active Substance: LEFLUNOMIDE
     Route: 065
  2. CYMBALTA [Concomitant]
     Active Substance: DULOXETINE HYDROCHLORIDE
  3. DOLQUINE [Concomitant]
     Active Substance: HYDROXYCHLOROQUINE SULFATE
     Route: 065
     Dates: start: 201110
  4. METHOTREXATE. [Concomitant]
     Active Substance: METHOTREXATE
     Route: 065
  5. METOJECT [Concomitant]
     Active Substance: METHOTREXATE SODIUM
  6. EMCONCOR [Concomitant]
     Active Substance: BISOPROLOL FUMARATE
  7. DEMILOS [Concomitant]
     Active Substance: CALCIUM CARBONATE\CHOLECALCIFEROL
  8. ZOMIG [Concomitant]
     Active Substance: ZOLMITRIPTAN
  9. ROACTEMRA [Suspect]
     Active Substance: TOCILIZUMAB
     Indication: RHEUMATOID ARTHRITIS
     Route: 058
     Dates: start: 20170421, end: 20170519
  10. ARAVA [Concomitant]
     Active Substance: LEFLUNOMIDE
     Route: 065
  11. ZALDIAR [Concomitant]
     Active Substance: ACETAMINOPHEN\TRAMADOL HYDROCHLORIDE
  12. OMEPRAZOLE. [Concomitant]
     Active Substance: OMEPRAZOLE
  13. PREDNISONE. [Concomitant]
     Active Substance: PREDNISONE
     Dosage: 3 TABLETS DAILY
     Route: 065

REACTIONS (3)
  - Abdominal pain [Recovered/Resolved]
  - Colitis [Recovered/Resolved]
  - Nausea [Recovered/Resolved]

NARRATIVE: CASE EVENT DATE: 20170517
